FAERS Safety Report 20458873 (Version 1)
Quarter: 2022Q1

REPORT INFORMATION
  Report Type: Spontaneous
  Country: US (occurrence: US)
  Receive Date: 20220211
  Receipt Date: 20220211
  Transmission Date: 20220424
  Serious: No
  Sender: FDA-Public Use
  Company Number: US-TARO-2021TAR00287

PATIENT

DRUGS (1)
  1. KETOCONAZOLE [Suspect]
     Active Substance: KETOCONAZOLE
     Indication: Fungal infection
     Dosage: UNK
     Route: 061
     Dates: start: 202103

REACTIONS (2)
  - Abnormal dreams [Not Recovered/Not Resolved]
  - Dysgeusia [Not Recovered/Not Resolved]
